FAERS Safety Report 6313236-X (Version None)
Quarter: 2009Q3

REPORT INFORMATION
  Report Type: 
  Country: None (occurrence: None)
  Receive Date: 20090814
  Receipt Date: 20090729
  Transmission Date: 20100115
  Serious: Yes (Hospitalization)
  Sender: FDA-Public Use
  Company Number: DSA_40544_2009

PATIENT
  Sex: Male

DRUGS (11)
  1. TILDIEM (TILDIEM - SLOW RELEASE ^SYNTHELABO^ - DILTIAZEM HYDROCHLORIDE [Suspect]
     Indication: ARRHYTHMIA
     Dosage: (60 MG BID ORAL)
     Route: 048
     Dates: start: 20090217, end: 20090303
  2. DIGOXIN [Suspect]
     Indication: ARRHYTHMIA
     Dosage: (0.25 MG QD ORAL)
     Route: 048
     Dates: start: 20090213, end: 20090303
  3. DETENSIEL /00802601/ (DETENSIEL - BISOPROLOL) 10 MG (NOT SPECIFIED) [Suspect]
     Indication: ARRHYTHMIA
     Dosage: (10 MG QD ORAL)
     Route: 048
     Dates: end: 20090303
  4. GLUCOR [Concomitant]
  5. METFORMIN HCL [Concomitant]
  6. COVERSYL /00790701/ [Concomitant]
  7. FLUDEX /00340101/ [Concomitant]
  8. PREVISCAN /00789001/ [Concomitant]
  9. LASILIX /00032601/ [Concomitant]
  10. VASTEN /00880402/ [Concomitant]
  11. LOVENOX [Concomitant]

REACTIONS (5)
  - BRADYCARDIA [None]
  - BUNDLE BRANCH BLOCK RIGHT [None]
  - EJECTION FRACTION ABNORMAL [None]
  - ELECTROCARDIOGRAM REPOLARISATION ABNORMALITY [None]
  - HYPONATRAEMIA [None]
